FAERS Safety Report 5447634-3 (Version None)
Quarter: 2007Q3

REPORT INFORMATION
  Report Type: 
  Country: None (occurrence: None)
  Receive Date: 20070910
  Receipt Date: 20070831
  Transmission Date: 20080115
  Serious: Yes (Other)
  Sender: FDA-Public Use
  Company Number: US-ROCHE-512759

PATIENT
  Age: 63 Year
  Sex: Female

DRUGS (2)
  1. CAPECITABINE [Suspect]
     Dosage: GIVEN FOR 14 DAYS.
     Route: 065
     Dates: start: 20061221
  2. BLINDED BEVACIZUMAB [Suspect]
     Route: 042
     Dates: start: 20061221

REACTIONS (1)
  - OSTEONECROSIS [None]
